FAERS Safety Report 17113961 (Version 1)
Quarter: 2019Q4

REPORT INFORMATION
  Report Type: Report from Study
  Country: US (occurrence: US)
  Receive Date: 20191205
  Receipt Date: 20191205
  Transmission Date: 20200122
  Serious: Yes (Other)
  Sender: FDA-Public Use
  Company Number: US-ROCHE-2485519

PATIENT
  Sex: Female

DRUGS (26)
  1. CEPHALEXIN [CEFALEXIN] [Concomitant]
     Active Substance: CEPHALEXIN
     Route: 048
     Dates: start: 20140128, end: 20180824
  2. DOXYCYCLINE HYCLATE. [Concomitant]
     Active Substance: DOXYCYCLINE HYCLATE
     Dosage: 1 CAPSULE TWO TIMES DAILY
     Route: 048
     Dates: start: 20131004
  3. ASPIRIN [ACETYLSALICYLIC ACID] [Concomitant]
     Active Substance: ASPIRIN
     Route: 048
     Dates: start: 20130405
  4. CLARITIN [Concomitant]
     Active Substance: LORATADINE
     Route: 048
     Dates: start: 20130405
  5. MIDODRINE HCL [Concomitant]
     Active Substance: MIDODRINE HYDROCHLORIDE
     Dosage: TAKE 1 TABLET 3 TIMES DAILY
     Route: 048
     Dates: start: 20190116
  6. CELEXA [Concomitant]
     Active Substance: CITALOPRAM HYDROBROMIDE
     Route: 048
     Dates: start: 20150123, end: 20180824
  7. COLACE [Concomitant]
     Active Substance: DOCUSATE SODIUM
     Route: 048
     Dates: start: 20150123, end: 20180824
  8. CYMBALTA [Concomitant]
     Active Substance: DULOXETINE HYDROCHLORIDE
     Dosage: TAKE 1 CAPSULE DAILY
     Route: 048
     Dates: start: 20130917
  9. OXYBUTYNIN CHLORIDE. [Concomitant]
     Active Substance: OXYBUTYNIN CHLORIDE
     Route: 048
  10. SIMVASTATIN. [Concomitant]
     Active Substance: SIMVASTATIN
     Route: 048
     Dates: start: 20150123, end: 20180824
  11. KEFLEX [Concomitant]
     Active Substance: CEPHALEXIN
     Dosage: 1 CAPSULE PO
     Route: 048
     Dates: start: 20131122
  12. PRAVASTINE [Concomitant]
     Active Substance: PRAVASTATIN SODIUM
     Dosage: TAKE 1 TABLET DAILY
     Route: 048
     Dates: start: 20190116
  13. RANITIDINE HCL [Concomitant]
     Active Substance: RANITIDINE HYDROCHLORIDE
     Dosage: TAKE 1 TABLET DAILY AS DIRECTED
     Route: 048
     Dates: start: 20190116
  14. ISOSORBIDE MONONITRATE. [Concomitant]
     Active Substance: ISOSORBIDE MONONITRATE
  15. METFORMIN HCL [Concomitant]
     Active Substance: METFORMIN HYDROCHLORIDE
  16. ESBRIET [Suspect]
     Active Substance: PIRFENIDONE
     Indication: ACUTE INTERSTITIAL PNEUMONITIS
     Dosage: TAKE 3 TABLET(S) BY MOUTH 3 TIMES A DAY
     Route: 048
  17. DOXYCYCLINE HYCLATE. [Concomitant]
     Active Substance: DOXYCYCLINE HYCLATE
     Dosage: 1 CAPSULE TWO TIMES DAILY
     Route: 048
     Dates: start: 20140317
  18. ESBRIET [Suspect]
     Active Substance: PIRFENIDONE
     Indication: IDIOPATHIC PULMONARY FIBROSIS
  19. METOPROLOL TARTRATE. [Concomitant]
     Active Substance: METOPROLOL TARTRATE
     Dosage: TAKE 1 TABLET TWICE DAILY
     Route: 048
     Dates: start: 20190116
  20. PLAVIX [Concomitant]
     Active Substance: CLOPIDOGREL BISULFATE
     Dosage: TAKE 1 TABLET DAILY
     Route: 048
     Dates: start: 20190116
  21. OMEPRAZOLE. [Concomitant]
     Active Substance: OMEPRAZOLE
     Dosage: TAKE 1 TAB TWICE DAILY
     Route: 048
     Dates: start: 20130523, end: 20131219
  22. PREDNISONE. [Concomitant]
     Active Substance: PREDNISONE
     Dosage: TAKE 1 TAB AS NEEDED
     Route: 048
     Dates: start: 20130528, end: 20140518
  23. TRADJENTA [Concomitant]
     Active Substance: LINAGLIPTIN
     Dosage: TAKE 1 TABLET DAILY
     Route: 048
     Dates: start: 20190116
  24. TRIMETHOPRIM. [Concomitant]
     Active Substance: TRIMETHOPRIM
     Dosage: 1 TABLET AT BEDTIME
     Route: 048
     Dates: start: 20160222, end: 20180824
  25. OMEPRAZOLE. [Concomitant]
     Active Substance: OMEPRAZOLE
     Route: 048
     Dates: start: 20150123, end: 20180824
  26. PREDNISONE. [Concomitant]
     Active Substance: PREDNISONE
     Route: 048
     Dates: start: 20150123, end: 20180824

REACTIONS (2)
  - Fall [Unknown]
  - Pelvic fracture [Unknown]
